FAERS Safety Report 9159971 (Version 1)
Quarter: 2013Q1

REPORT INFORMATION
  Report Type: Report from Study
  Country: ES (occurrence: ES)
  Receive Date: 20130313
  Receipt Date: 20130313
  Transmission Date: 20140127
  Serious: Yes (Hospitalization)
  Sender: FDA-Public Use
  Company Number: ES-AMGEN-ESPCT2012024003

PATIENT
  Age: 82 Year
  Sex: Male

DRUGS (3)
  1. PANITUMUMAB [Suspect]
     Indication: HEAD AND NECK CANCER
     Dosage: 6 MG/KG, Q2WK
     Route: 042
     Dates: start: 20120228, end: 20120313
  2. PACLITAXEL [Concomitant]
     Indication: HEAD AND NECK CANCER
     Dosage: 80 MG/M2, QWK
     Route: 042
     Dates: start: 20120228, end: 20120320
  3. LEVOFLOXACINE [Concomitant]
     Dosage: UNK
     Dates: end: 20120319

REACTIONS (1)
  - Respiratory tract infection [Recovered/Resolved]
